FAERS Safety Report 9596656 (Version 5)
Quarter: 2015Q2

REPORT INFORMATION
  Report Type: Spontaneous
  Country: US (occurrence: US)
  Receive Date: 20131004
  Receipt Date: 20150626
  Transmission Date: 20150821
  Serious: Yes (Hospitalization, Other)
  Sender: FDA-Public Use
  Company Number: US-009507513-1309USA014255

PATIENT
  Sex: Female
  Weight: 63.95 kg

DRUGS (6)
  1. ALENDRONATE SODIUM. [Suspect]
     Active Substance: ALENDRONATE SODIUM
     Dosage: UNK
  2. FOSAMAX [Suspect]
     Active Substance: ALENDRONATE SODIUM
     Indication: OSTEOPOROSIS
     Dosage: UNK
     Route: 048
     Dates: start: 2005, end: 2011
  3. FOSAMAX PLUS D [Suspect]
     Active Substance: ALENDRONATE SODIUM\CHOLECALCIFEROL
     Indication: OSTEOPOROSIS
     Dosage: UNK
     Route: 048
     Dates: end: 2006
  4. CORTICOSTEROIDS (UNSPECIFIED) [Concomitant]
     Active Substance: UNSPECIFIED INGREDIENT
     Dosage: UNK
     Dates: start: 2005, end: 201201
  5. ZOCOR [Concomitant]
     Active Substance: SIMVASTATIN
     Dosage: UNK
     Route: 048
     Dates: start: 2000
  6. FOSAMAX [Suspect]
     Active Substance: ALENDRONATE SODIUM
     Indication: OSTEOPENIA
     Dosage: UNK
     Route: 048
     Dates: start: 2012, end: 2012

REACTIONS (53)
  - Device breakage [Unknown]
  - Knee arthroplasty [Unknown]
  - Radiotherapy [Unknown]
  - Femur fracture [Unknown]
  - Osteonecrosis of jaw [Unknown]
  - Low turnover osteopathy [Unknown]
  - Presbyoesophagus [Unknown]
  - Spinal osteoarthritis [Unknown]
  - Vascular calcification [Unknown]
  - Lordosis [Unknown]
  - Spinal osteoarthritis [Unknown]
  - Hypertensive heart disease [Unknown]
  - Decreased appetite [Unknown]
  - Computerised tomogram abnormal [Unknown]
  - Feeling cold [Not Recovered/Not Resolved]
  - Pruritus [Unknown]
  - Oesophagitis [Unknown]
  - Gastrooesophageal reflux disease [Unknown]
  - Musculoskeletal chest pain [Unknown]
  - Intramedullary rod insertion [Unknown]
  - Depression [Not Recovered/Not Resolved]
  - Poor quality sleep [Not Recovered/Not Resolved]
  - Radiation fibrosis - lung [Unknown]
  - Restless legs syndrome [Unknown]
  - Haemorrhagic anaemia [Unknown]
  - Spinal osteoarthritis [Unknown]
  - Abnormal loss of weight [Unknown]
  - Chest pain [Unknown]
  - Osteomyelitis [Unknown]
  - Kyphosis [Unknown]
  - Pelvic fracture [Recovering/Resolving]
  - Pain in extremity [Unknown]
  - Constipation [Unknown]
  - Internal fixation of fracture [Unknown]
  - Blindness transient [Unknown]
  - Anxiety [Not Recovered/Not Resolved]
  - Incorrect dose administered [Unknown]
  - Pneumonitis [Unknown]
  - Essential hypertension [Recovered/Resolved]
  - Spinal compression fracture [Unknown]
  - Vitamin D decreased [Unknown]
  - Oedema peripheral [Unknown]
  - Bronchitis [Unknown]
  - Syncope [Recovered/Resolved]
  - Incision site complication [Recovered/Resolved]
  - Intervertebral disc degeneration [Unknown]
  - Osteoarthritis [Unknown]
  - Biopsy bone [Unknown]
  - Anaemia [Unknown]
  - Lumbar spinal stenosis [Unknown]
  - Asthma [Unknown]
  - Cough [Unknown]
  - Bundle branch block right [Unknown]

NARRATIVE: CASE EVENT DATE: 20050706
